FAERS Safety Report 9089077 (Version 1)
Quarter: 2013Q1

REPORT INFORMATION
  Report Type: Report from Study
  Country: US (occurrence: US)
  Receive Date: 20130201
  Receipt Date: 20130201
  Transmission Date: 20140127
  Serious: No
  Sender: FDA-Public Use
  Company Number: US-ABBOTT-12P-163-1025032-00

PATIENT
  Age: 60 Year
  Sex: Female

DRUGS (6)
  1. HUMIRA [Suspect]
     Indication: CROHN^S DISEASE
     Dates: start: 201002
  2. LABETALOL [Concomitant]
     Indication: TACHYCARDIA
     Dosage: DAILY
  3. LABETALOL [Concomitant]
     Indication: HYPERTENSION
  4. LOVASTATIN [Concomitant]
     Indication: BLOOD CHOLESTEROL INCREASED
     Dosage: DAILY
  5. PRILOSEC [Concomitant]
     Indication: GASTROOESOPHAGEAL REFLUX DISEASE
     Dosage: DAILY
  6. CITALOPRAM [Concomitant]
     Indication: INSOMNIA
     Dosage: AT BEDTIME

REACTIONS (2)
  - Injection site pain [Not Recovered/Not Resolved]
  - Injection site vesicles [Not Recovered/Not Resolved]
